FAERS Safety Report 20911960 (Version 1)
Quarter: 2022Q2

REPORT INFORMATION
  Report Type: Spontaneous
  Country: US (occurrence: US)
  Receive Date: 20220603
  Receipt Date: 20220603
  Transmission Date: 20220720
  Serious: No
  Sender: FDA-Public Use
  Company Number: US-TEVA-2022-US-2038862

PATIENT
  Age: 61 Year
  Sex: Female

DRUGS (2)
  1. PROAIR HFA [Interacting]
     Active Substance: ALBUTEROL SULFATE
     Indication: Chronic obstructive pulmonary disease
     Dosage: 90 MCG/DOSE
     Route: 055
     Dates: start: 2008
  2. TRELEGY ELLIPTA [Concomitant]
     Active Substance: FLUTICASONE FUROATE\UMECLIDINIUM BROMIDE\VILANTEROL TRIFENATATE
     Dosage: ONCE DAILY
     Route: 065

REACTIONS (3)
  - Product use in unapproved indication [Unknown]
  - Visual impairment [Unknown]
  - Prescription drug used without a prescription [Unknown]
